FAERS Safety Report 5807238-7 (Version None)
Quarter: 2008Q3

REPORT INFORMATION
  Report Type: 
  Country: None (occurrence: None)
  Receive Date: 20080711
  Receipt Date: 20080702
  Transmission Date: 20090109
  Serious: Yes (Hospitalization, Other)
  Sender: FDA-Public Use
  Company Number: IE-JNJFOC-20080701206

PATIENT
  Age: 59 Year
  Sex: Male

DRUGS (8)
  1. REMICADE [Suspect]
     Indication: PSORIASIS
     Route: 042
  2. AZATHIOPRINE [Concomitant]
  3. RIFATER [Concomitant]
  4. ASPIRIN [Concomitant]
  5. LIPITOR [Concomitant]
  6. NEXIUM [Concomitant]
  7. CENTYL [Concomitant]
  8. ISTIN [Concomitant]

REACTIONS (3)
  - BODY TEMPERATURE INCREASED [None]
  - CHILLS [None]
  - FLUSHING [None]
